FAERS Safety Report 12241852 (Version 3)
Quarter: 2016Q2

REPORT INFORMATION
  Report Type: Spontaneous
  Country: JP (occurrence: JP)
  Receive Date: 20160406
  Receipt Date: 20160427
  Transmission Date: 20160815
  Serious: Yes (Other)
  Sender: FDA-Public Use
  Company Number: JP-GLAXOSMITHKLINE-JP2016JPN044929

PATIENT
  Age: 83 Year
  Sex: Male

DRUGS (2)
  1. URIEF [Concomitant]
     Active Substance: SILODOSIN
     Dosage: UNK
  2. ANORO ELLIPTA [Suspect]
     Active Substance: UMECLIDINIUM BROMIDE\VILANTEROL TRIFENATATE
     Indication: OBSTRUCTIVE AIRWAYS DISORDER
     Dosage: UNK
     Route: 055

REACTIONS (2)
  - Neurogenic bladder [Recovered/Resolved]
  - Urinary retention [Recovered/Resolved]
